FAERS Safety Report 18151622 (Version 1)
Quarter: 2020Q3

REPORT INFORMATION
  Report Type: Other
  Country: US (occurrence: US)
  Receive Date: 20200814
  Receipt Date: 20200814
  Transmission Date: 20201103
  Serious: Yes (Other)
  Sender: FDA-Public Use
  Company Number: US-ROCHE-2659472

PATIENT

DRUGS (2)
  1. DORNASE ALFA. [Suspect]
     Active Substance: DORNASE ALFA
     Indication: PLEURAL INFECTION
     Route: 034
  2. ALTEPLASE. [Suspect]
     Active Substance: ALTEPLASE
     Indication: PLEURAL INFECTION
     Route: 034

REACTIONS (2)
  - Treatment failure [Unknown]
  - Haemothorax [Unknown]
